FAERS Safety Report 11205071 (Version 2)
Quarter: 2022Q1

REPORT INFORMATION
  Report Type: Report from Study
  Country: US (occurrence: US)
  Receive Date: 20150622
  Receipt Date: 20220212
  Transmission Date: 20220423
  Serious: Yes (Hospitalization, Other)
  Sender: FDA-Public Use
  Company Number: US-SHIRE-US201502117

PATIENT
  Sex: Male
  Weight: 25 kg

DRUGS (1)
  1. IDURSULFASE [Suspect]
     Active Substance: IDURSULFASE
     Indication: Mucopolysaccharidosis II
     Dosage: 12 MG, 1X/WEEK
     Route: 041
     Dates: start: 20140423

REACTIONS (6)
  - Gait inability [Not Recovered/Not Resolved]
  - Tracheal disorder [Unknown]
  - Complication associated with device [Unknown]
  - Respiratory syncytial virus infection [Unknown]
  - Hypotonia [Not Recovered/Not Resolved]
  - Product dose omission issue [Unknown]

NARRATIVE: CASE EVENT DATE: 20150101
